FAERS Safety Report 8120875-2 (Version None)
Quarter: 2012Q1

REPORT INFORMATION
  Report Type: 
  Country: None (occurrence: None)
  Receive Date: 20120203
  Receipt Date: 20120121
  Transmission Date: 20120608
  Serious: Yes (Other)
  Sender: FDA-Public Use
  Company Number: 1173533

PATIENT
  Age: 59 Year
  Sex: Male

DRUGS (1)
  1. CEFEPIME HYDROCHLORIDE [Suspect]
     Indication: SEPSIS
     Dosage: 2 G GRAM(S)

REACTIONS (4)
  - APHASIA [None]
  - STATUS EPILEPTICUS [None]
  - ENCEPHALOPATHY [None]
  - DRUG ADMINISTRATION ERROR [None]
